FAERS Safety Report 14247764 (Version 1)
Quarter: 2017Q4

REPORT INFORMATION
  Report Type: Spontaneous
  Country: US (occurrence: None)
  Receive Date: 20171203
  Receipt Date: 20171203
  Transmission Date: 20180321
  Serious: Yes (Other)
  Sender: FDA-Public Use
  Company Number: None

PATIENT
  Age: 65 Year
  Sex: Male

DRUGS (1)
  1. EPCLUSA [Suspect]
     Active Substance: SOFOSBUVIR\VELPATASVIR
     Indication: HEPATITIS C
     Dosage: 1 RAB DAILY PO
     Route: 048
     Dates: start: 20171020

REACTIONS (3)
  - Joint swelling [None]
  - Blood potassium decreased [None]
  - Peripheral swelling [None]

NARRATIVE: CASE EVENT DATE: 20171126
